FAERS Safety Report 20514393 (Version 1)
Quarter: 2022Q1

REPORT INFORMATION
  Report Type: Spontaneous
  Country: US (occurrence: None)
  Receive Date: 20220224
  Receipt Date: 20220224
  Transmission Date: 20220423
  Serious: Yes (Hospitalization)
  Sender: FDA-Public Use
  Company Number: None

PATIENT
  Age: 77 Year
  Sex: Female
  Weight: 77.11 kg

DRUGS (21)
  1. REPATHA [Suspect]
     Active Substance: EVOLOCUMAB
     Indication: Blood cholesterol increased
     Dosage: OTHER QUANTITY : 1 INJECTABLE ;?FREQUENCY : EVERY OTHER WEEK;?OTHER ROUTE : INJECTION;?
     Route: 050
     Dates: start: 20210520, end: 20210604
  2. LOSARTAN [Concomitant]
     Active Substance: LOSARTAN
  3. AMLODIPINE BESYLATE [Concomitant]
     Active Substance: AMLODIPINE BESYLATE
  4. LIVALO [Concomitant]
     Active Substance: PITAVASTATIN CALCIUM
  5. ASPIRIN [Concomitant]
     Active Substance: ASPIRIN
  6. Probiotic Align [Concomitant]
  7. Womens Multi Vitamin [Concomitant]
  8. D-2 [Concomitant]
  9. BIOTIN [Concomitant]
     Active Substance: BIOTIN
  10. COENZYME Q10 [Concomitant]
     Active Substance: DIETARY SUPPLEMENT\UBIDECARENONE
  11. Ester [Concomitant]
  12. CALCIUM [Concomitant]
     Active Substance: CALCIUM
  13. ZYRTEC [Concomitant]
     Active Substance: CETIRIZINE HYDROCHLORIDE
  14. Mirlax [Concomitant]
  15. MAGNESIUM [Concomitant]
     Active Substance: MAGNESIUM
  16. Syntrol [Concomitant]
  17. VITAMIN B12 [Concomitant]
     Active Substance: CYANOCOBALAMIN
  18. PANTOPRAZOLE SODIUM [Concomitant]
     Active Substance: PANTOPRAZOLE SODIUM
  19. D-MANNOSE [Concomitant]
  20. COLLAGEN [Concomitant]
     Active Substance: COLLAGEN
  21. Hydrochlorothazide [Concomitant]

REACTIONS (5)
  - Back pain [None]
  - Groin pain [None]
  - Breast pain [None]
  - Burning sensation [None]
  - Drug ineffective [None]

NARRATIVE: CASE EVENT DATE: 20210520
